FAERS Safety Report 6268280-8 (Version None)
Quarter: 2009Q3

REPORT INFORMATION
  Report Type: 
  Country: None (occurrence: None)
  Receive Date: 20090714
  Receipt Date: 20090714
  Transmission Date: 20100115
  Serious: Yes (Hospitalization)
  Sender: FDA-Public Use
  Company Number: None

PATIENT
  Age: 26 Year
  Sex: Male
  Weight: 55 kg

DRUGS (1)
  1. ZICAM [Suspect]
     Indication: UPPER RESPIRATORY TRACT INFECTION
     Dosage: NASAL
     Route: 045
     Dates: start: 20090401, end: 20090406

REACTIONS (1)
  - STEVENS-JOHNSON SYNDROME [None]
